FAERS Safety Report 4620830-0 (Version None)
Quarter: 2005Q1

REPORT INFORMATION
  Report Type: 
  Country: None (occurrence: None)
  Receive Date: 20050325
  Receipt Date: 20050314
  Transmission Date: 20050727
  Serious: Yes (Hospitalization)
  Sender: FDA-Public Use
  Company Number: CERZ-10819

PATIENT
  Age: 19 Year
  Sex: Female
  Weight: 34.5 kg

DRUGS (1)
  1. CEREZYME [Suspect]
     Indication: GAUCHER'S DISEASE
     Dosage: 2200 UNITS Q2WKS IV
     Route: 042
     Dates: start: 20041117

REACTIONS (2)
  - APHAGIA [None]
  - FAILURE TO THRIVE [None]
